FAERS Safety Report 5238964-9 (Version None)
Quarter: 2007Q1

REPORT INFORMATION
  Report Type: 
  Country: None (occurrence: None)
  Receive Date: 20070209
  Receipt Date: 20070204
  Transmission Date: 20070707
  Serious: Yes (Hospitalization)
  Sender: FDA-Public Use
  Company Number: 2007SP002248

PATIENT
  Age: 50 Year
  Sex: Male
  Weight: 101.1521 kg

DRUGS (2)
  1. PEG-INTRON [Suspect]
     Indication: HEPATITIS C
     Dosage: SC
     Route: 058
     Dates: start: 20060925, end: 20070130
  2. RIBAVIRIN [Suspect]
     Indication: HEPATITIS C
     Dosage: PO
     Route: 048
     Dates: start: 20060925, end: 20070130

REACTIONS (11)
  - ARTERIAL OCCLUSIVE DISEASE [None]
  - CHILLS [None]
  - DEHYDRATION [None]
  - HEADACHE [None]
  - HYPOTRICHOSIS [None]
  - INFLUENZA [None]
  - MALAISE [None]
  - RED BLOOD CELL COUNT DECREASED [None]
  - RETINAL EXUDATES [None]
  - SCOTOMA [None]
  - WEIGHT DECREASED [None]
